FAERS Safety Report 7969924-2 (Version None)
Quarter: 2011Q4

REPORT INFORMATION
  Report Type: 
  Country: None (occurrence: None)
  Receive Date: 20111212
  Receipt Date: 20111128
  Transmission Date: 20120403
  Serious: Yes (Death)
  Sender: FDA-Public Use
  Company Number: NL-MYLANLABS-2011S1025099

PATIENT

DRUGS (7)
  1. FLUDARABINE PHOSPHATE [Suspect]
     Indication: COELIAC DISEASE
     Route: 048
  2. SULFAMETHOXAZOLE AND TRIMETHOPRIM [Concomitant]
  3. NEUPOGEN [Suspect]
     Indication: HAEMATOPOIETIC STEM CELL MOBILISATION
     Dosage: DOSE = 2 X 10
     Route: 058
  4. CLADRIBINE [Concomitant]
  5. ANTIBACTERIALS FOR SYSTEMIC USE [Concomitant]
  6. ANTIFUNGALS FOR SYSTEMIC USE [Concomitant]
  7. MELPHALAN HYDROCHLORIDE [Suspect]
     Indication: COELIAC DISEASE
     Route: 042

REACTIONS (1)
  - INTESTINAL T-CELL LYMPHOMA [None]
